FAERS Safety Report 24956134 (Version 6)
Quarter: 2025Q1

REPORT INFORMATION
  Report Type: Spontaneous
  Country: US (occurrence: US)
  Receive Date: 20250211
  Receipt Date: 20250331
  Transmission Date: 20250409
  Serious: No
  Sender: PFIZER
  Company Number: US-PFIZER INC-202500028610

PATIENT
  Age: 10 Year
  Sex: Male

DRUGS (1)
  1. GENOTROPIN [Suspect]
     Active Substance: SOMATROPIN
     Dates: start: 2023

REACTIONS (4)
  - Wrong technique in device usage process [Unknown]
  - Device physical property issue [Unknown]
  - Device mechanical issue [Unknown]
  - Device defective [Unknown]
